FAERS Safety Report 17571385 (Version 1)
Quarter: 2020Q1

REPORT INFORMATION
  Report Type: Spontaneous
  Country: US (occurrence: US)
  Receive Date: 20200323
  Receipt Date: 20200323
  Transmission Date: 20200409
  Serious: No
  Sender: FDA-Public Use
  Company Number: US-BAYER-2020-048396

PATIENT
  Sex: Female

DRUGS (1)
  1. MIRALAX [Suspect]
     Active Substance: POLYETHYLENE GLYCOL 3350
     Indication: GASTROINTESTINAL DISORDER
     Dosage: UNK UNK, QOD
     Route: 048

REACTIONS (3)
  - Product packaging difficult to open [None]
  - Erythema [Unknown]
  - Pain in extremity [Unknown]

NARRATIVE: CASE EVENT DATE: 20200319
